FAERS Safety Report 4871745-4 (Version None)
Quarter: 2006Q1

REPORT INFORMATION
  Report Type: 
  Country: None (occurrence: None)
  Receive Date: 20060104
  Receipt Date: 20050414
  Transmission Date: 20060701
  Serious: No
  Sender: FDA-Public Use
  Company Number: US-BRISTOL-MYERS SQUIBB COMPANY-12933511

PATIENT
  Age: 6 Decade
  Sex: Female
  Weight: 54 kg

DRUGS (1)
  1. DESYREL [Suspect]
     Indication: INSOMNIA
     Dosage: INTERRUPTED X 1 NIGHT

REACTIONS (1)
  - ARTHRALGIA [None]
